FAERS Safety Report 5197103-3 (Version None)
Quarter: 2006Q4

REPORT INFORMATION
  Report Type: 
  Country: None (occurrence: None)
  Receive Date: 20061227
  Receipt Date: 20061212
  Transmission Date: 20070319
  Serious: Yes (Other)
  Sender: FDA-Public Use
  Company Number: 2006152880

PATIENT
  Sex: Female

DRUGS (1)
  1. LYRICA [Suspect]
     Indication: PAIN
     Dosage: 150 MG (75 MG, 2 IN 1 D), ORAL
     Route: 048
     Dates: start: 20060601, end: 20061209

REACTIONS (5)
  - AMBLYOPIA [None]
  - CATARACT OPERATION [None]
  - DRUG WITHDRAWAL SYNDROME [None]
  - MYALGIA [None]
  - VERTIGO [None]
